FAERS Safety Report 7935678-9 (Version None)
Quarter: 2011Q4

REPORT INFORMATION
  Report Type: 
  Country: None (occurrence: None)
  Receive Date: 20111123
  Receipt Date: 20111116
  Transmission Date: 20120403
  Serious: Yes (Death, Other)
  Sender: FDA-Public Use
  Company Number: US-AMGEN-USASP2011059140

PATIENT
  Sex: Male

DRUGS (1)
  1. NPLATE [Suspect]
     Indication: THROMBOCYTOPENIA
     Dosage: 85 MUG, UNK
     Route: 058
     Dates: start: 20110527, end: 20110527

REACTIONS (6)
  - PANCYTOPENIA [None]
  - SEPSIS [None]
  - GASTROINTESTINAL HAEMORRHAGE [None]
  - MULTIMORBIDITY [None]
  - CHRONIC LYMPHOCYTIC LEUKAEMIA [None]
  - CARDIAC FAILURE CONGESTIVE [None]
